FAERS Safety Report 17395976 (Version 1)
Quarter: 2020Q1

REPORT INFORMATION
  Report Type: Spontaneous
  Country: CN (occurrence: CN)
  Receive Date: 20200210
  Receipt Date: 20200210
  Transmission Date: 20200409
  Serious: Yes (Other)
  Sender: FDA-Public Use
  Company Number: CN-PFIZER INC-2020047989

PATIENT
  Age: 29 Year
  Sex: Female

DRUGS (7)
  1. CYTARABINE. [Suspect]
     Active Substance: CYTARABINE
     Indication: B-CELL TYPE ACUTE LEUKAEMIA
     Dosage: 4 G/M2, CYCLIC (ON DAY -10 TO -9)
     Dates: start: 2008
  2. BUSULFAN. [Suspect]
     Active Substance: BUSULFAN
     Indication: B-CELL TYPE ACUTE LEUKAEMIA
     Dosage: 9.6 MG/KG, CYCLIC (ON DAY -8 TO -6)
     Dates: start: 2008
  3. CYCLOSPORIN A [Concomitant]
     Active Substance: CYCLOSPORINE
     Indication: PROPHYLAXIS AGAINST GRAFT VERSUS HOST DISEASE
     Dosage: UNK
     Dates: start: 2008
  4. CYCLOPHOSPHAMIDE. [Suspect]
     Active Substance: CYCLOPHOSPHAMIDE
     Indication: B-CELL TYPE ACUTE LEUKAEMIA
     Dosage: 3.6 G/M2, CYCLIC (ON DAY -5 TO -4)
     Dates: start: 2008
  5. DEXAMETHASONE. [Concomitant]
     Active Substance: DEXAMETHASONE
     Indication: PROPHYLAXIS AGAINST GRAFT VERSUS HOST DISEASE
     Dosage: UNK
     Dates: start: 2008
  6. ANTITHYMOCYTE IMMUNOGLOBULIN [Suspect]
     Active Substance: THYMOCYTE IMMUNE GLOBULIN NOS
     Indication: B-CELL TYPE ACUTE LEUKAEMIA
     Dosage: 10 MG/KG, CYCLIC (ON DAY -5 TO -2)
     Dates: start: 2008
  7. SEMUSTINE [Suspect]
     Active Substance: SEMUSTINE
     Indication: B-CELL TYPE ACUTE LEUKAEMIA
     Dosage: 250 MG/M2, CYCLIC (DAY-3)
     Dates: start: 2008

REACTIONS (1)
  - Premature menopause [Recovering/Resolving]

NARRATIVE: CASE EVENT DATE: 2010
